FAERS Safety Report 9421710 (Version 1)
Quarter: 2013Q3

REPORT INFORMATION
  Report Type: Report from Study
  Country: JP (occurrence: JP)
  Receive Date: 20130726
  Receipt Date: 20130726
  Transmission Date: 20140515
  Serious: Yes (Other)
  Sender: FDA-Public Use
  Company Number: JP-ROCHE-1253204

PATIENT
  Age: 79 Year
  Sex: 0

DRUGS (2)
  1. PEG-INTERFERON ALFA 2A [Suspect]
     Indication: HEPATIC CIRRHOSIS
     Route: 058
  2. PEG-INTERFERON ALFA 2A [Suspect]
     Indication: HEPATITIS C

REACTIONS (2)
  - Brain contusion [Unknown]
  - Fall [Unknown]
